FAERS Safety Report 5108211-7 (Version None)
Quarter: 2006Q3

REPORT INFORMATION
  Report Type: 
  Country: None (occurrence: None)
  Receive Date: 20060915
  Receipt Date: 20060906
  Transmission Date: 20061208
  Serious: Yes (Hospitalization)
  Sender: FDA-Public Use
  Company Number: 2006-BP-10334RO

PATIENT
  Age: 74 Year
  Sex: Male

DRUGS (5)
  1. METHADONE HCL [Suspect]
     Indication: PAIN
     Dosage: 10 MG X 5 TABLETS, TWICE A DAY (10 MG), PO
     Route: 048
     Dates: start: 20040101
  2. METHADONE HCL [Suspect]
     Dosage: 10 MG, PO
     Route: 048
     Dates: start: 20060829, end: 20060829
  3. ACTOS [Concomitant]
  4. FLOMAX (MORNIFLUMATE) [Concomitant]
  5. ACIPHEX [Concomitant]

REACTIONS (4)
  - CONVULSION [None]
  - DRUG DISPENSING ERROR [None]
  - PHARMACEUTICAL PRODUCT COMPLAINT [None]
  - THERAPEUTIC RESPONSE UNEXPECTED WITH DRUG SUBSTITUTION [None]
